FAERS Safety Report 5367497-4 (Version None)
Quarter: 2007Q2

REPORT INFORMATION
  Report Type: 
  Country: None (occurrence: None)
  Receive Date: 20070622
  Receipt Date: 20061025
  Transmission Date: 20071010
  Serious: No
  Sender: FDA-Public Use
  Company Number: US-ASTRAZENECA-2006UW20594

PATIENT
  Age: 80 Year
  Sex: Male
  Weight: 79.4 kg

DRUGS (5)
  1. PULMICORT RESPULES [Suspect]
     Indication: EMPHYSEMA
     Route: 055
     Dates: start: 20061023
  2. ALBUTEROL [Concomitant]
  3. IPRATROPIUM BROMIDE [Concomitant]
  4. MAXZIDE [Concomitant]
  5. LISINOPRIL [Concomitant]
     Route: 048

REACTIONS (2)
  - ANGIOEDEMA [None]
  - EATING DISORDER SYMPTOM [None]
